FAERS Safety Report 23431586 (Version 2)
Quarter: 2024Q2

REPORT INFORMATION
  Report Type: Spontaneous
  Country: JP (occurrence: JP)
  Receive Date: 20240123
  Receipt Date: 20240523
  Transmission Date: 20240716
  Serious: Yes (Other)
  Sender: FDA-Public Use
  Company Number: JP-CHUGAI-2024000778

PATIENT
  Age: 79 Year
  Sex: Female
  Weight: 50 kg

DRUGS (9)
  1. ACTEMRA [Suspect]
     Active Substance: TOCILIZUMAB
     Indication: Still^s disease
     Dosage: 480 MILLIGRAM, ONCE/2WEEKS
     Route: 065
     Dates: start: 20231109
  2. ACTEMRA [Suspect]
     Active Substance: TOCILIZUMAB
     Dosage: 400 MILLIGRAM, ONCE/3WEEKS
     Route: 065
     Dates: start: 20231216
  3. ACTEMRA [Suspect]
     Active Substance: TOCILIZUMAB
     Dosage: 400 MILLIGRAM, ONCE/WEEK
     Route: 065
     Dates: start: 20231228
  4. ACTEMRA [Suspect]
     Active Substance: TOCILIZUMAB
     Dosage: 400 MILLIGRAM, ONCE/2WEEK
     Route: 065
     Dates: start: 20240209
  5. MEDROL [Concomitant]
     Active Substance: METHYLPREDNISOLONE
     Dosage: UNK
     Dates: start: 202305
  6. LEVOTHYROXINE SODIUM [Concomitant]
     Active Substance: LEVOTHYROXINE SODIUM
     Dosage: UNK
  7. ENALAPRIL MALEATE [Concomitant]
     Active Substance: ENALAPRIL MALEATE
     Dosage: UNK
  8. SPIRONOLACTONE [Concomitant]
     Active Substance: SPIRONOLACTONE
     Dosage: UNK
     Dates: start: 20231205
  9. FUROSEMIDE [Concomitant]
     Active Substance: FUROSEMIDE
     Dates: start: 20231201

REACTIONS (2)
  - Hypofibrinogenaemia [Not Recovered/Not Resolved]
  - Still^s disease [Unknown]

NARRATIVE: CASE EVENT DATE: 20231113
